FAERS Safety Report 17793970 (Version 1)
Quarter: 2020Q2

REPORT INFORMATION
  Report Type: Spontaneous
  Country: US (occurrence: US)
  Receive Date: 20200515
  Receipt Date: 20200515
  Transmission Date: 20200714
  Serious: No
  Sender: FDA-Public Use
  Company Number: US-CELGENEUS-USA-20200503923

PATIENT
  Age: 60 Year
  Sex: Male

DRUGS (1)
  1. OTEZLA [Suspect]
     Active Substance: APREMILAST
     Indication: PRODUCT USED FOR UNKNOWN INDICATION
     Dosage: 80 MILLIGRAM
     Route: 048
     Dates: start: 2019

REACTIONS (3)
  - Joint stiffness [Unknown]
  - Condition aggravated [Unknown]
  - Product dose omission [Unknown]

NARRATIVE: CASE EVENT DATE: 202005
